FAERS Safety Report 13125399 (Version 1)
Quarter: 2017Q1

REPORT INFORMATION
  Report Type: Spontaneous
  Country: US (occurrence: US)
  Receive Date: 20170117
  Receipt Date: 20170117
  Transmission Date: 20170428
  Serious: No
  Sender: FDA-Public Use
  Company Number: None

PATIENT
  Age: 55 Year
  Sex: Female

DRUGS (1)
  1. IMIQUIMOD. [Suspect]
     Active Substance: IMIQUIMOD
     Indication: ACTINIC KERATOSIS
     Route: 062

REACTIONS (5)
  - Aphthous ulcer [None]
  - Thermal burn [None]
  - Skin exfoliation [None]
  - Cheilitis [None]
  - Blister [None]

NARRATIVE: CASE EVENT DATE: 20170117
